FAERS Safety Report 9529952 (Version 1)
Quarter: 2013Q3

REPORT INFORMATION
  Report Type: Spontaneous
  Country: US (occurrence: US)
  Receive Date: 20130917
  Receipt Date: 20130917
  Transmission Date: 20140515
  Serious: Yes (Other)
  Sender: FDA-Public Use
  Company Number: ALCN2013US004587

PATIENT
  Age: 74 Year
  Sex: Female
  Weight: 68.27 kg

DRUGS (6)
  1. BSS [Suspect]
     Dosage: UNK
     Route: 031
     Dates: start: 20130904, end: 20130904
  2. VIGAMOX [Suspect]
     Dosage: UNK
     Route: 047
     Dates: start: 20130904, end: 20130904
  3. TETRACAINE [Suspect]
     Dosage: UNK
     Route: 047
     Dates: start: 20130904, end: 20130904
  4. TIMOLOL [Suspect]
     Dosage: UNK
     Route: 047
     Dates: start: 20130904, end: 20130904
  5. BETADINE [Suspect]
  6. EPINEPHRINE [Concomitant]
     Dosage: UNK
     Route: 031
     Dates: start: 20130904, end: 20130904

REACTIONS (2)
  - Toxic anterior segment syndrome [Recovered/Resolved]
  - Off label use [Recovered/Resolved]
